FAERS Safety Report 20257756 (Version 1)
Quarter: 2021Q4

REPORT INFORMATION
  Report Type: Report from Study
  Country: CA (occurrence: CA)
  Receive Date: 20211230
  Receipt Date: 20211230
  Transmission Date: 20220303
  Serious: Yes (Other)
  Sender: FDA-Public Use
  Company Number: CA-PFIZER INC-202101850229

PATIENT
  Age: 54 Year
  Sex: Female

DRUGS (9)
  1. METHOTREXATE SODIUM [Suspect]
     Active Substance: METHOTREXATE SODIUM
     Dosage: UNK, 1 EVERY 1 WEEK
     Route: 058
  2. DICLOFENAC [Suspect]
     Active Substance: DICLOFENAC
     Dosage: 1 DF, 2 EVERY 1 DAYS
     Route: 048
  3. FOLIC ACID [Suspect]
     Active Substance: FOLIC ACID
     Dosage: 1 DF, 1 EVERY 1 DAYS
     Route: 048
  4. PANTOPRAZOLE [Suspect]
     Active Substance: PANTOPRAZOLE
     Dosage: 1 DF, 1 EVERY 1 DAYS
     Route: 048
  5. BUPROPION [Concomitant]
     Active Substance: BUPROPION
     Route: 065
  6. LEVOTHYROXINE SODIUM [Concomitant]
     Active Substance: LEVOTHYROXINE SODIUM
     Dosage: 1 DF, 1 EVERY 1 DAYS
     Route: 048
  7. LORAZEPAM [Concomitant]
     Active Substance: LORAZEPAM
     Dosage: 1 DF, 2 EVERY 1 DAYS
     Route: 048
  8. METFORMIN [Concomitant]
     Active Substance: METFORMIN HYDROCHLORIDE
     Dosage: 1 DF, 2 EVERY 1 DAYS
     Route: 048
  9. VENLAFAXINE HYDROCHLORIDE [Concomitant]
     Active Substance: VENLAFAXINE HYDROCHLORIDE
     Route: 065

REACTIONS (5)
  - Erythema induratum [Unknown]
  - Pruritus [Unknown]
  - Tuberculin test positive [Unknown]
  - Tuberculosis [Unknown]
  - Off label use [Unknown]
